FAERS Safety Report 12090573 (Version 2)
Quarter: 2016Q2

REPORT INFORMATION
  Report Type: Spontaneous
  Country: US (occurrence: US)
  Receive Date: 20160218
  Receipt Date: 20160404
  Transmission Date: 20160815
  Serious: Yes (Other)
  Sender: FDA-Public Use
  Company Number: US-PFIZER INC-2016092183

PATIENT
  Age: 87 Year
  Sex: Female

DRUGS (3)
  1. RESTASIS [Suspect]
     Active Substance: CYCLOSPORINE
     Indication: DRY EYE
     Dosage: 1 GTT, 2X/DAY (INSTILL 1 DROP BOTH EYES TWICE DAILY 0.05%)
     Dates: start: 2011
  2. AZOPT [Suspect]
     Active Substance: BRINZOLAMIDE
     Indication: INTRAOCULAR PRESSURE TEST ABNORMAL
     Dosage: 1 GTT, 3X/DAY (INSTILL 1 DROP INTO BOTH EYES 3X DAILY, 1%)
     Dates: start: 2008
  3. XALATAN [Suspect]
     Active Substance: LATANOPROST
     Indication: INTRAOCULAR PRESSURE TEST ABNORMAL
     Dosage: 1 GTT, 1X/DAY (0.005%1 DROP BOTH EYES BEDTIME)
     Dates: start: 2002

REACTIONS (4)
  - Diplopia [Unknown]
  - Disability [Unknown]
  - Visual acuity reduced [Unknown]
  - Hypoacusis [Unknown]
